FAERS Safety Report 5262609-5 (Version None)
Quarter: 2007Q1

REPORT INFORMATION
  Report Type: 
  Country: None (occurrence: None)
  Receive Date: 20070312
  Receipt Date: 20070228
  Transmission Date: 20070707
  Serious: Yes (Other)
  Sender: FDA-Public Use
  Company Number: HQWYE076101DEC06

PATIENT
  Age: 72 Year
  Sex: Male

DRUGS (16)
  1. CORDARONE [Suspect]
     Indication: ARRHYTHMIA
     Route: 048
     Dates: start: 19970101
  2. AVAPRO [Suspect]
     Indication: HYPERTENSION
     Route: 048
     Dates: start: 19990301, end: 20050101
  3. AVAPRO [Suspect]
     Route: 048
     Dates: start: 20050101, end: 20050101
  4. AVAPRO [Suspect]
     Route: 048
     Dates: start: 20050101, end: 20050701
  5. AVAPRO [Suspect]
     Route: 048
     Dates: start: 20050701, end: 20050801
  6. AVAPRO [Suspect]
     Route: 048
     Dates: start: 20050801, end: 20061113
  7. AVAPRO [Suspect]
     Route: 048
     Dates: start: 20061114, end: 20061117
  8. AVAPRO [Suspect]
     Route: 048
     Dates: start: 20061118
  9. RIVOTRIL [Concomitant]
     Dosage: UNKNOWN
     Dates: start: 20040901
  10. DECADRON [Concomitant]
     Indication: BURSITIS
     Dates: start: 20060301, end: 20060101
  11. DECADRON [Concomitant]
     Dates: start: 20060101
  12. TENORMIN [Concomitant]
     Dosage: UNKNOWN
     Dates: start: 20021101
  13. CRESTOR [Concomitant]
     Dosage: UNKNOWN
     Dates: start: 20040901
  14. PLAVIX [Suspect]
     Indication: ANGIOPLASTY
     Route: 048
     Dates: start: 20020701, end: 20060822
  15. PLAVIX [Suspect]
     Indication: STENT PLACEMENT
  16. APO-ATENOL [Concomitant]
     Indication: HYPERTENSION
     Route: 048

REACTIONS (4)
  - ARRHYTHMIA [None]
  - BLOOD PRESSURE FLUCTUATION [None]
  - DRUG INEFFECTIVE [None]
  - STENT OCCLUSION [None]
